FAERS Safety Report 18461560 (Version 4)
Quarter: 2021Q2

REPORT INFORMATION
  Report Type: Spontaneous
  Country: FR (occurrence: FR)
  Receive Date: 20201104
  Receipt Date: 20210405
  Transmission Date: 20210717
  Serious: Yes (Hospitalization, Other)
  Sender: FDA-Public Use
  Company Number: FR-SA-2020SA303655

PATIENT
  Sex: Male
  Weight: 70 kg

DRUGS (1)
  1. MYOZYME [Suspect]
     Active Substance: ALGLUCOSIDASE ALFA
     Indication: GLYCOGEN STORAGE DISEASE TYPE II
     Dosage: 20 MG/KG
     Route: 042
     Dates: start: 2015

REACTIONS (5)
  - Staphylococcal sepsis [Recovering/Resolving]
  - Inadequate aseptic technique in use of product [Unknown]
  - Device related infection [Unknown]
  - Pyrexia [Unknown]
  - Intervertebral discitis [Recovering/Resolving]

NARRATIVE: CASE EVENT DATE: 20201105
